FAERS Safety Report 6527131-4 (Version None)
Quarter: 2010Q1

REPORT INFORMATION
  Report Type: 
  Country: None (occurrence: None)
  Receive Date: 20100105
  Receipt Date: 20091228
  Transmission Date: 20100710
  Serious: Yes (Hospitalization, Other)
  Sender: FDA-Public Use
  Company Number: US-ELI_LILLY_AND_COMPANY-US200912006006

PATIENT
  Sex: Female

DRUGS (1)
  1. HUMALOG [Suspect]
     Indication: DIABETES MELLITUS
     Dosage: UNK, AS NEEDED
     Route: 058

REACTIONS (6)
  - BLOOD GLUCOSE INCREASED [None]
  - CARDIAC DISORDER [None]
  - CHEST PAIN [None]
  - CORONARY ARTERY BYPASS [None]
  - DRUG HYPERSENSITIVITY [None]
  - KETOACIDOSIS [None]
